FAERS Safety Report 21465595 (Version 1)
Quarter: 2022Q4

REPORT INFORMATION
  Report Type: Spontaneous
  Country: US (occurrence: None)
  Receive Date: 20221014
  Receipt Date: 20221014
  Transmission Date: 20230112
  Serious: No
  Sender: FDA-Public Use
  Company Number: None

PATIENT

DRUGS (3)
  1. CARBOPROST TROMETHAMINE [Suspect]
     Active Substance: CARBOPROST TROMETHAMINE
  2. HEMABATE [Suspect]
     Active Substance: CARBOPROST TROMETHAMINE
     Dosage: OTHER ROUTE : IM OR IV USE;?
     Route: 050
  3. METHYLERGONOVINE MALEATE [Suspect]
     Active Substance: METHYLERGONOVINE MALEATE

REACTIONS (4)
  - Product packaging confusion [None]
  - Product supply issue [None]
  - Product appearance confusion [None]
  - Intercepted product storage error [None]
